FAERS Safety Report 14332251 (Version 1)
Quarter: 2017Q4

REPORT INFORMATION
  Report Type: Spontaneous
  Country: IT (occurrence: IT)
  Receive Date: 20171228
  Receipt Date: 20171228
  Transmission Date: 20180321
  Serious: Yes (Life-Threatening, Other)
  Sender: FDA-Public Use
  Company Number: IT-AUROBINDO-AUR-APL-2017-47607

PATIENT
  Age: 4 Month
  Weight: 5 kg

DRUGS (6)
  1. AMIODARONE [Suspect]
     Active Substance: AMIODARONE
     Indication: TORSADE DE POINTES
     Dosage: ()
  2. AMIODARONE [Suspect]
     Active Substance: AMIODARONE
     Indication: VENTRICULAR TACHYCARDIA
  3. AMIODARONE [Suspect]
     Active Substance: AMIODARONE
     Indication: ELECTROCARDIOGRAM QT PROLONGED
  4. AMIODARONE [Suspect]
     Active Substance: AMIODARONE
     Indication: ARRHYTHMIA
  5. AMIODARONE [Suspect]
     Active Substance: AMIODARONE
     Indication: WOLFF-PARKINSON-WHITE SYNDROME
  6. AMIODARONE [Suspect]
     Active Substance: AMIODARONE
     Indication: CARDIOMYOPATHY

REACTIONS (1)
  - Drug ineffective [Unknown]
